FAERS Safety Report 8614972-2 (Version None)
Quarter: 2012Q3

REPORT INFORMATION
  Report Type: 
  Country: None (occurrence: None)
  Receive Date: 20120814
  Receipt Date: 20120814
  Transmission Date: 20120928
  Serious: Yes (Hospitalization)
  Sender: FDA-Public Use
  Company Number: None

PATIENT
  Age: 49 Year
  Sex: Male
  Weight: 92.1 kg

DRUGS (1)
  1. CLONAZEPAM [Suspect]
     Indication: BIPOLAR DISORDER
     Dosage: 4 MG, ONCE, PO
     Route: 048
     Dates: start: 20120810, end: 20120810

REACTIONS (1)
  - LOSS OF CONSCIOUSNESS [None]
